FAERS Safety Report 9227931 (Version 31)
Quarter: 2014Q4

REPORT INFORMATION
  Report Type: Report from Study
  Country: CA (occurrence: CA)
  Receive Date: 20130412
  Receipt Date: 20141128
  Transmission Date: 20150529
  Serious: Yes (Hospitalization, Other)
  Sender: FDA-Public Use
  Company Number: CA-ROCHE-1153086

PATIENT
  Age: 82 Year
  Sex: Male
  Weight: 68 kg

DRUGS (30)
  1. ACTEMRA [Suspect]
     Active Substance: TOCILIZUMAB
     Indication: RHEUMATOID ARTHRITIS
     Dosage: LAST DOSE RECEIVED ON SEP/2013
     Route: 042
     Dates: start: 20130416, end: 20141030
  2. DIPHENHYDRAMINE HCL [Concomitant]
     Active Substance: DIPHENHYDRAMINE HYDROCHLORIDE
     Indication: PREMEDICATION
     Route: 048
     Dates: start: 20121002, end: 20121017
  3. TYLENOL [Concomitant]
     Active Substance: ACETAMINOPHEN
  4. NYSTATIN. [Concomitant]
     Active Substance: NYSTATIN
     Route: 065
  5. TYLENOL WITH CODEINE [Concomitant]
     Active Substance: ACETAMINOPHEN\CODEINE PHOSPHATE
  6. LANSOPRAZOLE. [Concomitant]
     Active Substance: LANSOPRAZOLE
  7. SECARIS [Concomitant]
     Active Substance: PROPYLENE GLYCOL
  8. OXYCODONE [Concomitant]
     Active Substance: OXYCODONE
  9. VOLTAREN [Concomitant]
     Active Substance: DICLOFENAC SODIUM
     Route: 065
  10. ATIVAN [Concomitant]
     Active Substance: LORAZEPAM
  11. CLONAZEPAM. [Concomitant]
     Active Substance: CLONAZEPAM
  12. CRANBERRY. [Concomitant]
     Active Substance: CRANBERRY
  13. LACRI-LUBE (CANADA) [Concomitant]
  14. CELEBREX [Concomitant]
     Active Substance: CELECOXIB
  15. GABAPENTIN. [Concomitant]
     Active Substance: GABAPENTIN
  16. ACETAMINOPHEN. [Concomitant]
     Active Substance: ACETAMINOPHEN
     Indication: PREMEDICATION
     Route: 048
     Dates: start: 20121002, end: 20121017
  17. COLACE [Concomitant]
     Active Substance: DOCUSATE SODIUM
  18. LACTULOSE. [Concomitant]
     Active Substance: LACTULOSE
  19. SENOKOT [Concomitant]
     Active Substance: SENNOSIDES
  20. RABEPRAZOLE [Concomitant]
     Active Substance: RABEPRAZOLE
  21. PRED FORTE [Concomitant]
     Active Substance: PREDNISOLONE ACETATE
  22. GOLIMUMAB [Concomitant]
     Active Substance: GOLIMUMAB
  23. METHYLPREDNISOLONE. [Concomitant]
     Active Substance: METHYLPREDNISOLONE
     Route: 065
     Dates: start: 20121002, end: 20121017
  24. REFRESH CELLUVISC [Concomitant]
     Active Substance: CARBOXYMETHYLCELLULOSE SODIUM
  25. RITUXAN [Suspect]
     Active Substance: RITUXIMAB
     Indication: RHEUMATOID ARTHRITIS
     Route: 042
     Dates: start: 20121002, end: 20121017
  26. ORENCIA [Concomitant]
     Active Substance: ABATACEPT
     Indication: RHEUMATOID ARTHRITIS
     Route: 065
  27. DETROL [Concomitant]
     Active Substance: TOLTERODINE TARTRATE
  28. CELEXA [Concomitant]
     Active Substance: CITALOPRAM HYDROBROMIDE
  29. SENNA [Concomitant]
     Active Substance: SENNA LEAF\SENNOSIDES\SENNOSIDES A AND B
  30. LAX-A-DAY [Concomitant]

REACTIONS (23)
  - Bacterial disease carrier [Recovered/Resolved]
  - Visual acuity reduced [Recovering/Resolving]
  - Rheumatoid arthritis [Not Recovered/Not Resolved]
  - Weight increased [Not Recovered/Not Resolved]
  - Diarrhoea [Not Recovered/Not Resolved]
  - Fall [Unknown]
  - Joint range of motion decreased [Not Recovered/Not Resolved]
  - Lower respiratory tract infection [Unknown]
  - Conjunctivitis [Recovering/Resolving]
  - Peripheral swelling [Unknown]
  - Pain in extremity [Not Recovered/Not Resolved]
  - Balance disorder [Unknown]
  - Transplant failure [Unknown]
  - Eye infection [Not Recovered/Not Resolved]
  - Gastroenteritis norovirus [Recovered/Resolved]
  - Stomatitis [Recovered/Resolved]
  - Drug ineffective [Unknown]
  - Eye disorder [Recovered/Resolved]
  - Arthralgia [Not Recovered/Not Resolved]
  - Hip fracture [Unknown]
  - Gastrooesophageal reflux disease [Not Recovered/Not Resolved]
  - Ulcerative keratitis [Unknown]
  - Arthralgia [Not Recovered/Not Resolved]

NARRATIVE: CASE EVENT DATE: 2013
